FAERS Safety Report 6553405-7 (Version None)
Quarter: 2010Q1

REPORT INFORMATION
  Report Type: 
  Country: None (occurrence: None)
  Receive Date: 20100127
  Receipt Date: 20091006
  Transmission Date: 20100710
  Serious: No
  Sender: FDA-Public Use
  Company Number: A0811193A

PATIENT
  Age: 30 Year
  Sex: Female

DRUGS (1)
  1. IMITREX [Suspect]
     Indication: MIGRAINE
     Dosage: 6MG SINGLE DOSE
     Route: 042
     Dates: start: 20091006, end: 20091006

REACTIONS (2)
  - FEELING HOT [None]
  - INCORRECT ROUTE OF DRUG ADMINISTRATION [None]
